FAERS Safety Report 7392850-7 (Version None)
Quarter: 2011Q1

REPORT INFORMATION
  Report Type: 
  Country: None (occurrence: None)
  Receive Date: 20110330
  Receipt Date: 20110330
  Transmission Date: 20110831
  Serious: Yes (Life-Threatening, Disabling)
  Sender: FDA-Public Use
  Company Number: None

PATIENT
  Age: 74 Year
  Sex: Male
  Weight: 92.9874 kg

DRUGS (2)
  1. RENVELA [Suspect]
     Indication: DIALYSIS
     Dosage: 1 TABLET 3 TIMES DAILY PO
     Route: 048
     Dates: start: 20101210, end: 20101210
  2. RENVELA [Suspect]
     Indication: DIALYSIS
     Dosage: 1 TABLET 3 TIMES DAILY PO
     Route: 048
     Dates: start: 20100610, end: 20101201

REACTIONS (4)
  - INSOMNIA [None]
  - PRURITUS [None]
  - SKIN EXFOLIATION [None]
  - RASH [None]
